FAERS Safety Report 7109107-1 (Version None)
Quarter: 2010Q4

REPORT INFORMATION
  Report Type: 
  Country: None (occurrence: None)
  Receive Date: 20101117
  Receipt Date: 20101115
  Transmission Date: 20110411
  Serious: Yes (Life-Threatening, Hospitalization, Other)
  Sender: FDA-Public Use
  Company Number: AR-PFIZER INC-2010149508

PATIENT
  Age: 38 Year
  Sex: Male

DRUGS (3)
  1. CHAMPIX [Suspect]
     Indication: SMOKING CESSATION THERAPY
     Dosage: UNK
     Dates: start: 20101105
  2. BENZODIAZEPINE DERIVATIVES [Suspect]
  3. PHENERGAN [Suspect]

REACTIONS (2)
  - COMA [None]
  - SUICIDE ATTEMPT [None]
